FAERS Safety Report 23705483 (Version 1)
Quarter: 2024Q2

REPORT INFORMATION
  Report Type: Spontaneous
  Country: US (occurrence: US)
  Receive Date: 20240404
  Receipt Date: 20240404
  Transmission Date: 20240716
  Serious: Yes (Disabling, Other)
  Sender: FDA-Public Use
  Company Number: US-SPECGX-T202400816

PATIENT
  Age: 47 Year
  Sex: Male

DRUGS (1)
  1. METHADONE [Suspect]
     Active Substance: METHADONE HYDROCHLORIDE
     Indication: Drug use disorder
     Dosage: 140 MILLIGRAM
     Route: 065

REACTIONS (2)
  - Imprisonment [Unknown]
  - Drug withdrawal syndrome [Unknown]
